FAERS Safety Report 7329471-8 (Version None)
Quarter: 2011Q1

REPORT INFORMATION
  Report Type: 
  Country: None (occurrence: None)
  Receive Date: 20110303
  Receipt Date: 20110217
  Transmission Date: 20110831
  Serious: Yes (Other)
  Sender: FDA-Public Use
  Company Number: FR-CEPHALON-2011000633

PATIENT
  Sex: Female

DRUGS (3)
  1. MODAFINIL [Suspect]
     Route: 048
     Dates: start: 20110115
  2. EFFEXOR [Concomitant]
     Indication: DEPRESSION
     Dates: start: 20050101
  3. MODAFINIL [Suspect]
     Indication: HYPERSOMNIA
     Route: 048
     Dates: start: 20110101, end: 20110114

REACTIONS (4)
  - HEAD DISCOMFORT [None]
  - HYPERTENSION [None]
  - HEADACHE [None]
  - MALAISE [None]
